FAERS Safety Report 12217090 (Version 1)
Quarter: 2016Q1

REPORT INFORMATION
  Report Type: Spontaneous
  Country: GB (occurrence: GB)
  Receive Date: 20160329
  Receipt Date: 20160329
  Transmission Date: 20160526
  Serious: Yes (Hospitalization)
  Sender: FDA-Public Use
  Company Number: GB-WATSON-2016-05875

PATIENT
  Age: 85 Year
  Sex: Female

DRUGS (1)
  1. FUROSEMIDE (UNKNOWN) [Suspect]
     Active Substance: FUROSEMIDE
     Indication: PRODUCT USED FOR UNKNOWN INDICATION
     Dosage: UNK
     Route: 065
     Dates: end: 20151128

REACTIONS (5)
  - Dyspnoea [Unknown]
  - Chest pain [Unknown]
  - Pulmonary oedema [Unknown]
  - Troponin increased [Unknown]
  - Malaise [Unknown]

NARRATIVE: CASE EVENT DATE: 20151128
